FAERS Safety Report 24050254 (Version 1)
Quarter: 2024Q3

REPORT INFORMATION
  Report Type: Spontaneous
  Country: ZA (occurrence: None)
  Receive Date: 20240704
  Receipt Date: 20240704
  Transmission Date: 20241016
  Serious: Yes (Other)
  Sender: ASTRAZENECA
  Company Number: 2024A149060

PATIENT
  Age: 60 Year
  Sex: Male

DRUGS (9)
  1. DAPAGLIFLOZIN PROPANEDIOL [Suspect]
     Active Substance: DAPAGLIFLOZIN PROPANEDIOL
     Indication: Diabetes mellitus
     Route: 048
  2. LIPOGEN [Concomitant]
     Indication: Blood cholesterol
  3. ESOMEPRAZOLE MAGNESIUM [Concomitant]
     Active Substance: ESOMEPRAZOLE MAGNESIUM
     Indication: Ulcer
  4. ECOTRIN [Concomitant]
     Active Substance: ASPIRIN
     Indication: Anticoagulant therapy
  5. METFORMIN HYDROCHLORIDE [Concomitant]
     Active Substance: METFORMIN HYDROCHLORIDE
     Indication: Diabetes mellitus
  6. PLENISH-K SR [Concomitant]
     Indication: Hypokalaemia
  7. LASIX [Concomitant]
     Active Substance: FUROSEMIDE
     Indication: Hypertension
  8. OMIFLUX [Concomitant]
     Indication: Ulcer
     Dosage: 20 MG
  9. VOMIZ [Concomitant]

REACTIONS (1)
  - Oxygen saturation decreased [Unknown]
